FAERS Safety Report 10084920 (Version 1)
Quarter: 2014Q2

REPORT INFORMATION
  Report Type: Spontaneous
  Country: SA (occurrence: SA)
  Receive Date: 20140417
  Receipt Date: 20140417
  Transmission Date: 20141212
  Serious: Yes (Hospitalization)
  Sender: FDA-Public Use
  Company Number: PHHY2014SA042623

PATIENT
  Age: 46 Year
  Sex: Male

DRUGS (2)
  1. LAMOTRIGINE [Suspect]
     Dosage: 6000 MG
  2. FLUOXETINE [Concomitant]
     Dosage: 20 MG

REACTIONS (9)
  - Muscle spasticity [Recovered/Resolved]
  - Myoclonus [Recovered/Resolved]
  - Clonus [Recovered/Resolved]
  - Toxicity to various agents [Unknown]
  - Coma [Recovered/Resolved]
  - Loss of consciousness [Recovered/Resolved]
  - Convulsion [Recovered/Resolved]
  - Pain in extremity [Recovered/Resolved]
  - Suicide attempt [Unknown]
